FAERS Safety Report 8765974 (Version 7)
Quarter: 2013Q2

REPORT INFORMATION
  Report Type: Spontaneous
  Country: US (occurrence: US)
  Receive Date: 20120904
  Receipt Date: 20130522
  Transmission Date: 20140414
  Serious: Yes (Hospitalization, Disabling, Other)
  Sender: FDA-Public Use
  Company Number: US-009507513-1208USA012392

PATIENT
  Sex: Female

DRUGS (5)
  1. FOSAMAX [Suspect]
     Indication: OSTEOPENIA
     Dosage: 70 MG, QW
     Route: 048
     Dates: start: 200110
  2. FOSAMAX [Suspect]
     Indication: OSTEOPOROSIS
  3. EVISTA [Suspect]
     Indication: OSTEOPOROSIS
     Dosage: UNK
     Route: 048
     Dates: start: 2001, end: 2007
  4. BONIVA [Suspect]
     Indication: OSTEOPENIA
     Dosage: 150 MG, UNK
     Dates: start: 200706
  5. ACTONEL [Suspect]
     Indication: OSTEOPENIA
     Dosage: 5 MG, UNK
     Dates: start: 200008, end: 200208

REACTIONS (34)
  - Intramedullary rod insertion [Unknown]
  - Femur fracture [Not Recovered/Not Resolved]
  - Intramedullary rod insertion [Unknown]
  - Osteoporosis [Not Recovered/Not Resolved]
  - Basal cell carcinoma [Unknown]
  - Femur fracture [Not Recovered/Not Resolved]
  - Bursitis [Unknown]
  - Hyperaemia [Unknown]
  - Impaired healing [Unknown]
  - Vascular calcification [Unknown]
  - Cataract operation [Unknown]
  - Cataract [Unknown]
  - Cataract operation [Unknown]
  - Arthropathy [Unknown]
  - Rotator cuff syndrome [Unknown]
  - Rotator cuff syndrome [Unknown]
  - Tendon injury [Unknown]
  - Arthritis [Unknown]
  - Arthropathy [Unknown]
  - Limb asymmetry [Unknown]
  - Diverticulum intestinal [Unknown]
  - Hypertension [Unknown]
  - Hyperlipidaemia [Unknown]
  - Bursitis [Unknown]
  - Osteoarthritis [Unknown]
  - Actinic keratosis [Unknown]
  - Rhinitis allergic [Unknown]
  - Impaired fasting glucose [Unknown]
  - Gait disturbance [Unknown]
  - Muscular weakness [Unknown]
  - Vitamin D deficiency [Unknown]
  - Blood potassium abnormal [Unknown]
  - Fall [Unknown]
  - Back pain [Unknown]
